FAERS Safety Report 5318047-X (Version None)
Quarter: 2007Q2

REPORT INFORMATION
  Report Type: 
  Country: None (occurrence: None)
  Receive Date: 20070507
  Receipt Date: 20070504
  Transmission Date: 20071010
  Serious: Yes (Other)
  Sender: FDA-Public Use
  Company Number: IT-BRISTOL-MYERS SQUIBB COMPANY-13770169

PATIENT

DRUGS (5)
  1. HYDROXYUREA [Suspect]
     Indication: SKIN ULCER
  2. HYDROXYUREA [Suspect]
     Indication: THALASSAEMIA BETA
  3. FOLIC ACID [Suspect]
     Indication: THALASSAEMIA BETA
  4. DESFERRIOXAMINE [Suspect]
     Indication: THALASSAEMIA BETA
  5. ALPHA-TOCOPHEROL [Suspect]
     Indication: THALASSAEMIA BETA

REACTIONS (2)
  - DRUG INEFFECTIVE [None]
  - SERUM FERRITIN INCREASED [None]
